FAERS Safety Report 16393175 (Version 1)
Quarter: 2019Q2

REPORT INFORMATION
  Report Type: Spontaneous
  Country: GB (occurrence: GB)
  Receive Date: 20190605
  Receipt Date: 20190605
  Transmission Date: 20190711
  Serious: Yes (Hospitalization)
  Sender: FDA-Public Use
  Company Number: GB-ACCORD-131109

PATIENT
  Age: 51 Year
  Sex: Female

DRUGS (10)
  1. OMEPRAZOLE. [Concomitant]
     Active Substance: OMEPRAZOLE
  2. CASSIA [Concomitant]
  3. GLICLAZIDE [Concomitant]
     Active Substance: GLICLAZIDE
  4. AMITRIPTYLINE [Suspect]
     Active Substance: AMITRIPTYLINE
     Indication: FIBROMYALGIA
     Dosage: AT NIGHT
     Route: 048
     Dates: start: 20180801
  5. PREGABALIN. [Concomitant]
     Active Substance: PREGABALIN
  6. VENLAFAXINE [Concomitant]
     Active Substance: VENLAFAXINE HYDROCHLORIDE
  7. HYOSCINE [Concomitant]
     Active Substance: SCOPOLAMINE
  8. MENTHA X PIPERITA [Concomitant]
     Active Substance: HERBALS
  9. MOVICOL [Concomitant]
     Active Substance: POLYETHYLENE GLYCOL 3350\POTASSIUM CHLORIDE\SODIUM BICARBONATE\SODIUM CHLORIDE
  10. BISACODYL. [Concomitant]
     Active Substance: BISACODYL

REACTIONS (4)
  - Constipation [Recovered/Resolved]
  - Abdominal distension [Unknown]
  - Abdominal pain [Unknown]
  - Pollakiuria [Unknown]

NARRATIVE: CASE EVENT DATE: 20190221
